FAERS Safety Report 12458620 (Version 1)
Quarter: 2016Q2

REPORT INFORMATION
  Report Type: Spontaneous
  Country: CA (occurrence: CA)
  Receive Date: 20160613
  Receipt Date: 20160613
  Transmission Date: 20160815
  Serious: Yes (Other)
  Sender: FDA-Public Use
  Company Number: CA-ROCHE-1772413

PATIENT
  Sex: Female

DRUGS (4)
  1. CELLCEPT [Suspect]
     Active Substance: MYCOPHENOLATE MOFETIL\MYCOPHENOLATE MOFETIL HYDROCHLORIDE
     Indication: PEMPHIGUS
     Dosage: STOPPED
     Route: 065
     Dates: end: 201605
  2. PREDNISONE. [Concomitant]
     Active Substance: PREDNISONE
  3. ACTONEL [Concomitant]
     Active Substance: RISEDRONATE SODIUM
  4. VITAMIN B2 [Concomitant]
     Active Substance: RIBOFLAVIN

REACTIONS (4)
  - Feeding disorder [Not Recovered/Not Resolved]
  - Pemphigus [Not Recovered/Not Resolved]
  - Weight decreased [Not Recovered/Not Resolved]
  - Chest pain [Unknown]
